FAERS Safety Report 7891606-6 (Version None)
Quarter: 2011Q4

REPORT INFORMATION
  Report Type: 
  Country: None (occurrence: None)
  Receive Date: 20111103
  Receipt Date: 20110808
  Transmission Date: 20120403
  Serious: No
  Sender: FDA-Public Use
  Company Number: US-AMGEN-USASP2011040266

PATIENT
  Age: 68 Year
  Sex: Female

DRUGS (2)
  1. ENBREL [Suspect]
     Indication: RHEUMATOID ARTHRITIS
     Dosage: 50 MG, QWK
     Dates: start: 20110804
  2. METHOTREXATE [Concomitant]
     Dosage: 1 MG, UNK
     Dates: start: 20090101

REACTIONS (6)
  - INJECTION SITE HAEMATOMA [None]
  - INJECTION SITE PAIN [None]
  - FREQUENT BOWEL MOVEMENTS [None]
  - HEADACHE [None]
  - PAIN IN EXTREMITY [None]
  - FLATULENCE [None]
